FAERS Safety Report 6308843-4 (Version None)
Quarter: 2009Q3

REPORT INFORMATION
  Report Type: 
  Country: None (occurrence: None)
  Receive Date: 20090813
  Receipt Date: 20081215
  Transmission Date: 20100115
  Serious: No
  Sender: FDA-Public Use
  Company Number: US-ALLERGAN-0815935US

PATIENT
  Sex: Male

DRUGS (2)
  1. COMBIGAN [Suspect]
     Indication: INTRAOCULAR PRESSURE INCREASED
     Dosage: 1 GTT, BID
     Route: 047
     Dates: start: 20081212, end: 20081213
  2. LUMIGAN [Concomitant]
     Indication: INTRAOCULAR PRESSURE INCREASED

REACTIONS (1)
  - EYE IRRITATION [None]
